FAERS Safety Report 6128193-9 (Version None)
Quarter: 2009Q1

REPORT INFORMATION
  Report Type: 
  Country: None (occurrence: None)
  Receive Date: 20090323
  Receipt Date: 20090310
  Transmission Date: 20090719
  Serious: Yes (Life-Threatening)
  Sender: FDA-Public Use
  Company Number: JP-ROCHE-615849

PATIENT
  Sex: Male
  Weight: 60 kg

DRUGS (11)
  1. TAMIFLU [Suspect]
     Indication: INFLUENZA
     Dosage: DOSE INCREASED
     Route: 048
     Dates: start: 20090205, end: 20090205
  2. TAMIFLU [Suspect]
     Route: 048
     Dates: start: 20090206, end: 20090206
  3. MEVALOTIN [Concomitant]
     Dosage: FORM: ORAL FORMULATION (NOT OTHERWISE SPECIFIED)
     Route: 048
  4. NORVASC [Concomitant]
     Dosage: DRUG: NORVASC OD
     Route: 048
  5. AMARYL [Concomitant]
     Route: 048
  6. MUCODYNE [Concomitant]
     Dosage: FORM: FINE GRANULE
     Route: 048
  7. ASVERIN [Concomitant]
     Route: 048
  8. TRANSAMIN [Concomitant]
     Route: 048
  9. FLAVERIC [Concomitant]
     Route: 048
  10. KAKKON-TO [Concomitant]
     Route: 048
  11. CALONAL [Concomitant]
     Dosage: FORM: ORAL FORMULATION (NOT OTHERWISE SPECIFIED)
     Route: 048

REACTIONS (2)
  - ABNORMAL BEHAVIOUR [None]
  - HALLUCINATION [None]
